FAERS Safety Report 7972481-8 (Version None)
Quarter: 2011Q4

REPORT INFORMATION
  Report Type: 
  Country: None (occurrence: None)
  Receive Date: 20111213
  Receipt Date: 20111116
  Transmission Date: 20120403
  Serious: Yes (Other)
  Sender: FDA-Public Use
  Company Number: IL-BRISTOL-MYERS SQUIBB COMPANY-16275257

PATIENT
  Age: 42 Year
  Sex: Male

DRUGS (3)
  1. ERBITUX [Suspect]
     Indication: HEAD AND NECK CANCER METASTATIC
     Route: 042
     Dates: start: 20110501
  2. FLUOROURACIL [Concomitant]
     Indication: HEAD AND NECK CANCER METASTATIC
  3. CISPLATIN [Concomitant]
     Indication: HEAD AND NECK CANCER METASTATIC

REACTIONS (3)
  - MUSCULAR WEAKNESS [None]
  - PAIN IN EXTREMITY [None]
  - HYPOAESTHESIA [None]
